FAERS Safety Report 16173865 (Version 4)
Quarter: 2019Q3

REPORT INFORMATION
  Report Type: Spontaneous
  Country: BR (occurrence: BR)
  Receive Date: 20190409
  Receipt Date: 20190914
  Transmission Date: 20191004
  Serious: Yes (Other)
  Sender: FDA-Public Use
  Company Number: BR-GLAXOSMITHKLINE-BR2019GSK035966

PATIENT
  Sex: Female
  Weight: 80 kg

DRUGS (1)
  1. NUCALA [Suspect]
     Active Substance: MEPOLIZUMAB
     Indication: ASTHMA
     Dosage: 100 MG, UNK
     Dates: start: 20190225

REACTIONS (10)
  - Ill-defined disorder [Unknown]
  - Inappropriate schedule of product administration [Unknown]
  - Hypersensitivity [Unknown]
  - Malaise [Unknown]
  - Asthmatic crisis [Unknown]
  - Panic disorder [Unknown]
  - Dyspnoea [Unknown]
  - Latent tuberculosis [Unknown]
  - Fatigue [Unknown]
  - Loss of personal independence in daily activities [Unknown]
